FAERS Safety Report 10384392 (Version 1)
Quarter: 2014Q3

REPORT INFORMATION
  Report Type: Spontaneous
  Country: US (occurrence: None)
  Receive Date: 20140813
  Receipt Date: 20140813
  Transmission Date: 20150326
  Serious: No
  Sender: FDA-Public Use
  Company Number: None

PATIENT
  Age: 64 Year
  Sex: Female

DRUGS (1)
  1. ORENCIA [Suspect]
     Active Substance: ABATACEPT
     Indication: RHEUMATOID ARTHRITIS
     Dosage: 125MG  ONCE WEEKLY  SQ
     Route: 058
     Dates: start: 20140429, end: 20140502

REACTIONS (6)
  - Rash [None]
  - Skin disorder [None]
  - Skin ulcer [None]
  - Urticaria [None]
  - Purulence [None]
  - Pruritus [None]

NARRATIVE: CASE EVENT DATE: 20140502
